FAERS Safety Report 8871584 (Version 1)
Quarter: 2012Q4

REPORT INFORMATION
  Report Type: 
  Country: US (occurrence: US)
  Receive Date: 20121026
  Receipt Date: 20121026
  Transmission Date: 20130627
  Serious: No
  Sender: FDA-Public Use
  Company Number: US-AMGEN-USASP2012048502

PATIENT
  Sex: Female
  Weight: 81.63 kg

DRUGS (1)
  1. ENBREL [Suspect]
     Indication: PSORIASIS
     Dosage: 50 mg, 2 times/wk For 3 months
     Route: 058

REACTIONS (4)
  - Injection site mass [Unknown]
  - Injection site hypersensitivity [Unknown]
  - Injection site erythema [Unknown]
  - Injection site swelling [Unknown]
